FAERS Safety Report 7146574-1 (Version None)
Quarter: 2010Q4

REPORT INFORMATION
  Report Type: 
  Country: None (occurrence: None)
  Receive Date: 20101208
  Receipt Date: 20101129
  Transmission Date: 20110411
  Serious: Yes (Other)
  Sender: FDA-Public Use
  Company Number: US-ABBOTT-10P-163-0688687-00

PATIENT
  Sex: Female
  Weight: 90.8 kg

DRUGS (5)
  1. HUMIRA [Suspect]
     Indication: PSORIASIS
     Route: 058
     Dates: start: 20090601, end: 20100801
  2. HUMIRA [Suspect]
     Route: 058
     Dates: start: 20100901
  3. LOESTRIN FE 1/20 [Concomitant]
     Indication: ORAL CONTRACEPTION
     Route: 048
  4. ZOLOFT [Concomitant]
     Indication: ANXIETY
     Route: 048
  5. UNKNOWN ANTIBIOTIC [Concomitant]
     Indication: URINARY TRACT INFECTION
     Route: 048
     Dates: start: 20100901

REACTIONS (5)
  - BLOOD PRESSURE INCREASED [None]
  - FALL [None]
  - INTERVERTEBRAL DISC PROTRUSION [None]
  - LOWER LIMB FRACTURE [None]
  - URINARY TRACT INFECTION [None]
